FAERS Safety Report 11555792 (Version 1)
Quarter: 2015Q3

REPORT INFORMATION
  Report Type: Spontaneous
  Country: GB (occurrence: GB)
  Receive Date: 20150925
  Receipt Date: 20150925
  Transmission Date: 20151125
  Serious: Yes (Other)
  Sender: FDA-Public Use
  Company Number: GB-MALLINCKRODT-T201504436

PATIENT
  Age: 55 Year
  Sex: Female

DRUGS (2)
  1. SODIUM IODIDE (I 131) CAPSULES T [Suspect]
     Active Substance: SODIUM IODIDE I-131
     Indication: HYPERTHYROIDISM
     Dosage: 400 MBQ, SINGLE
     Route: 065
  2. CARBIMAZOLE [Concomitant]
     Active Substance: CARBIMAZOLE
     Indication: HYPERTHYROIDISM
     Dosage: 20 MG DAILY, ONE MONTH PRIOR TO I131 TREATMENT

REACTIONS (2)
  - Stress cardiomyopathy [Recovered/Resolved]
  - Radiation thyroiditis [Recovered/Resolved]
